FAERS Safety Report 8978503 (Version 1)
Quarter: 2012Q4

REPORT INFORMATION
  Report Type: 
  Country: NL (occurrence: NL)
  Receive Date: 20121220
  Receipt Date: 20121220
  Transmission Date: 20130627
  Serious: Yes (Other)
  Sender: FDA-Public Use
  Company Number: NL-BAXTER-2012BAX028266

PATIENT

DRUGS (1)
  1. GAMMAGARD S/D [Suspect]
     Indication: INTRACRANIAL HEMORRHAGE

REACTIONS (4)
  - Premature baby [Recovered/Resolved]
  - Foetal exposure during pregnancy [Recovered/Resolved]
  - Caesarean section [None]
  - Foetal distress syndrome [None]
